FAERS Safety Report 13210798 (Version 1)
Quarter: 2017Q1

REPORT INFORMATION
  Report Type: Spontaneous
  Country: CA (occurrence: CA)
  Receive Date: 20170210
  Receipt Date: 20170210
  Transmission Date: 20170428
  Serious: Yes (Other)
  Sender: FDA-Public Use
  Company Number: CA-009507513-1702CAN002489

PATIENT
  Age: 50 Year
  Sex: Female

DRUGS (2)
  1. ZERBAXA [Suspect]
     Active Substance: CEFTOLOZANE SULFATE\TAZOBACTAM SODIUM
     Indication: PSEUDOMONAS INFECTION
  2. METRONIDAZOLE. [Concomitant]
     Active Substance: METRONIDAZOLE

REACTIONS (2)
  - Drug ineffective [Unknown]
  - Thrombocytopenia [Unknown]
